FAERS Safety Report 8320370-1 (Version None)
Quarter: 2012Q2

REPORT INFORMATION
  Report Type: 
  Country: None (occurrence: None)
  Receive Date: 20120430
  Receipt Date: 20120426
  Transmission Date: 20120825
  Serious: No
  Sender: FDA-Public Use
  Company Number: US-PFIZER INC-2012103937

PATIENT
  Sex: Male
  Weight: 95.238 kg

DRUGS (5)
  1. TOPROL-XL [Concomitant]
     Indication: HYPERTENSION
     Dosage: UNK
  2. IBUPROFEN (ADVIL) [Suspect]
     Indication: ARTHROPATHY
  3. IBUPROFEN (ADVIL) [Suspect]
     Indication: BACK PAIN
     Dosage: 400 MG, 2X/DAY
     Route: 048
     Dates: start: 20110101
  4. CARVEDILOL [Concomitant]
     Indication: HYPERTENSION
     Dosage: UNK
  5. IBUPROFEN (ADVIL) [Suspect]
     Indication: PELVIC DISCOMFORT

REACTIONS (1)
  - DRUG INEFFECTIVE [None]
